FAERS Safety Report 23810571 (Version 2)
Quarter: 2024Q2

REPORT INFORMATION
  Report Type: Spontaneous
  Country: US (occurrence: US)
  Receive Date: 20240502
  Receipt Date: 20240507
  Transmission Date: 20240715
  Serious: No
  Sender: FDA-Public Use
  Company Number: US-AMGEN-USASP2024086850

PATIENT
  Age: 66 Year
  Sex: Female

DRUGS (12)
  1. OTEZLA [Suspect]
     Active Substance: APREMILAST
     Indication: Psoriasis
     Dosage: 30 MILLIGRAM, BID
     Route: 048
     Dates: start: 20231116
  2. OTEZLA [Suspect]
     Active Substance: APREMILAST
     Indication: Eczema
  3. BACLOFEN [Concomitant]
     Active Substance: BACLOFEN
     Dosage: 10 MILLIGRAM
  4. DULOXETINE [Concomitant]
     Active Substance: DULOXETINE
     Dosage: 20 MILLIGRAM
  5. HYDROCHLOROTHIAZIDE [Concomitant]
     Active Substance: HYDROCHLOROTHIAZIDE
     Dosage: 12.5 MILLIGRAM
  6. KRILL OIL [Concomitant]
     Active Substance: DIETARY SUPPLEMENT\KRILL OIL
     Dosage: KRILL OIL  OMEGA-3
  7. LOSARTAN [Concomitant]
     Active Substance: LOSARTAN
     Dosage: 100 MILLIGRAM
  8. PHENERGAN [Concomitant]
     Active Substance: PROMETHAZINE HYDROCHLORIDE
     Dosage: 25 MILLIGRAM
  9. POTASSIUM GLUCONATE [Concomitant]
     Active Substance: POTASSIUM GLUCONATE
     Dosage: 595 MILLIGRAM, 300^S
  10. RIZATRIPTAN [Concomitant]
     Active Substance: RIZATRIPTAN
     Dosage: ODT
  11. ROSUVASTATIN [Concomitant]
     Active Substance: ROSUVASTATIN
     Dosage: 10 MILLIGRAM
  12. SONATA [Concomitant]
     Active Substance: ZALEPLON
     Dosage: 10 MILLIGRAM

REACTIONS (1)
  - Diarrhoea [Not Recovered/Not Resolved]
